FAERS Safety Report 18119452 (Version 1)
Quarter: 2020Q3

REPORT INFORMATION
  Report Type: Spontaneous
  Country: US (occurrence: US)
  Receive Date: 20200805
  Receipt Date: 20200805
  Transmission Date: 20201103
  Serious: Yes (Hospitalization)
  Sender: FDA-Public Use
  Company Number: None

PATIENT
  Age: 59 Year
  Sex: Female

DRUGS (22)
  1. SPIRONOLACTONE. [Concomitant]
     Active Substance: SPIRONOLACTONE
  2. SELEXIPAG [Suspect]
     Active Substance: SELEXIPAG
  3. SILDENAFIL. [Concomitant]
     Active Substance: SILDENAFIL
  4. REVATIO [Suspect]
     Active Substance: SILDENAFIL CITRATE
  5. ATORVASTATIN [Concomitant]
     Active Substance: ATORVASTATIN
  6. DUONEB [Concomitant]
     Active Substance: ALBUTEROL SULFATE\IPRATROPIUM BROMIDE
  7. LOSARTAN. [Concomitant]
     Active Substance: LOSARTAN
  8. VOLTAREN TOP GEL [Concomitant]
  9. CYCLOBENZAPRINE. [Concomitant]
     Active Substance: CYCLOBENZAPRINE
  10. TYVASO [Concomitant]
     Active Substance: TREPROSTINIL
  11. VENTOLIN HFA [Concomitant]
     Active Substance: ALBUTEROL SULFATE
  12. FOLIC ACID. [Concomitant]
     Active Substance: FOLIC ACID
  13. HUMULIN 70/30 [Concomitant]
     Active Substance: INSULIN HUMAN
  14. OPSUMIT [Suspect]
     Active Substance: MACITENTAN
     Indication: PULMONARY ARTERIAL HYPERTENSION
     Route: 048
     Dates: start: 201902
  15. ADVAIR HFA [Concomitant]
     Active Substance: FLUTICASONE PROPIONATE\SALMETEROL XINAFOATE
  16. GABAPENTIN. [Concomitant]
     Active Substance: GABAPENTIN
  17. MELATONIN [Concomitant]
     Active Substance: MELATONIN
  18. TRAMADOL. [Concomitant]
     Active Substance: TRAMADOL
  19. NICOTINE TRANSDERMAL SYSTEM [Concomitant]
     Active Substance: NICOTINE
  20. BUMETANIDE. [Concomitant]
     Active Substance: BUMETANIDE
  21. LIDOCAINE TOP [Concomitant]
  22. NARCAN [Concomitant]
     Active Substance: NALOXONE HYDROCHLORIDE

REACTIONS (4)
  - Fluid overload [None]
  - Cardiac failure congestive [None]
  - Chest discomfort [None]
  - Dyspnoea [None]

NARRATIVE: CASE EVENT DATE: 20200703
